FAERS Safety Report 10511704 (Version 1)
Quarter: 2014Q4

REPORT INFORMATION
  Report Type: Spontaneous
  Country: US (occurrence: US)
  Receive Date: 20141010
  Receipt Date: 20141010
  Transmission Date: 20150528
  Serious: No
  Sender: FDA-Public Use
  Company Number: US-BAYER-2014-150540

PATIENT
  Age: 51 Year
  Sex: Female

DRUGS (9)
  1. HUMIRA [Suspect]
     Active Substance: ADALIMUMAB
     Dosage: 40 MG, Q2WK
     Dates: start: 2014, end: 2014
  2. DIAZEPAM. [Concomitant]
     Active Substance: DIAZEPAM
     Indication: RESTLESS LEGS SYNDROME
     Dosage: 5 MG, QD
  3. HUMIRA [Suspect]
     Active Substance: ADALIMUMAB
     Dosage: UNK
     Dates: start: 20140603, end: 20140604
  4. ALEVE [Suspect]
     Active Substance: NAPROXEN SODIUM
     Indication: MYALGIA
     Dosage: 3 DF, UNK
     Dates: start: 20140604
  5. ROTIGOTINE [Concomitant]
     Active Substance: ROTIGOTINE
     Indication: RESTLESS LEGS SYNDROME
     Dosage: 2 MG, QD
  6. HYDROCODONE [Concomitant]
     Active Substance: HYDROCODONE
     Indication: RESTLESS LEGS SYNDROME
     Dosage: 5/325MG AT NIGHT, QD
  7. IBUPROFEN. [Suspect]
     Active Substance: IBUPROFEN
     Indication: ARTHRALGIA
  8. IBUPROFEN. [Suspect]
     Active Substance: IBUPROFEN
     Indication: MYALGIA
  9. LISINOPRIL AND HYDROCHLOROTHIAZIDE [Concomitant]
     Active Substance: HYDROCHLOROTHIAZIDE\LISINOPRIL
     Indication: HYPERTENSION
     Dosage: 40/25MG, QD

REACTIONS (11)
  - Chills [None]
  - Nausea [Recovered/Resolved]
  - Pyrexia [Recovered/Resolved]
  - Pain in extremity [None]
  - Diarrhoea [None]
  - Myalgia [None]
  - Tearfulness [None]
  - Malaise [None]
  - Eructation [None]
  - Feeling hot [None]
  - Arthralgia [None]

NARRATIVE: CASE EVENT DATE: 201406
